FAERS Safety Report 8920421 (Version 1)
Quarter: 2012Q4

REPORT INFORMATION
  Report Type: 
  Country: ZA (occurrence: ZA)
  Receive Date: 20121122
  Receipt Date: 20121122
  Transmission Date: 20130627
  Serious: Yes (Hospitalization)
  Sender: FDA-Public Use
  Company Number: PHHY2012ZA104971

PATIENT
  Age: 39 Year
  Sex: Male

DRUGS (12)
  1. ISONIAZID [Suspect]
     Indication: PULMONARY TUBERCULOSIS
  2. RIFAMPICIN [Suspect]
     Indication: PULMONARY TUBERCULOSIS
  3. PYRAZINAMIDE [Suspect]
     Indication: PULMONARY TUBERCULOSIS
  4. ETHAMBUTOL [Suspect]
     Indication: PULMONARY TUBERCULOSIS
  5. DOVATE [Suspect]
     Route: 061
  6. CO-TRIMOXAZOLE [Concomitant]
     Indication: ANTIFUNGAL PROPHYLAXIS
  7. EFAVIRENZ [Concomitant]
  8. LAMIVUDINE [Concomitant]
  9. STAVUDINE [Concomitant]
  10. OFLOXACIN [Concomitant]
  11. STREPTOMYCIN [Concomitant]
  12. ETHIONAMIDE [Concomitant]

REACTIONS (8)
  - Lichenoid keratosis [Recovering/Resolving]
  - Pigmentation disorder [Recovering/Resolving]
  - Skin depigmentation [Recovering/Resolving]
  - Skin hyperpigmentation [Recovering/Resolving]
  - Alopecia [Recovering/Resolving]
  - Leukoderma [Recovering/Resolving]
  - Photosensitivity reaction [Recovering/Resolving]
  - Rash [Recovering/Resolving]
